FAERS Safety Report 19917967 (Version 2)
Quarter: 2021Q4

REPORT INFORMATION
  Report Type: Spontaneous
  Country: US (occurrence: US)
  Receive Date: 20211005
  Receipt Date: 20211008
  Transmission Date: 20220303
  Serious: Yes (Hospitalization)
  Sender: FDA-Public Use
  Company Number: US-BAYER-2021A217420

PATIENT
  Age: 43 Year
  Sex: Female

DRUGS (1)
  1. MIRENA [Suspect]
     Active Substance: LEVONORGESTREL
     Dosage: 20 ?G, CONT
     Route: 015
     Dates: start: 20210922, end: 20210922

REACTIONS (7)
  - Uterine perforation [None]
  - Abdominal pain [None]
  - Cold sweat [None]
  - Dyspnoea [None]
  - Dropped head syndrome [None]
  - Complication of device insertion [None]
  - Hot flush [None]

NARRATIVE: CASE EVENT DATE: 20210922
